FAERS Safety Report 9023779 (Version 1)
Quarter: 2013Q1

REPORT INFORMATION
  Report Type: Spontaneous
  Country: BR (occurrence: BR)
  Receive Date: 20130121
  Receipt Date: 20130121
  Transmission Date: 20140127
  Serious: Yes (Other)
  Sender: FDA-Public Use
  Company Number: BR-009507513-1301BRA009128

PATIENT
  Age: 63 None
  Sex: Female
  Weight: 68 kg

DRUGS (5)
  1. ZETSIM [Suspect]
     Indication: DYSLIPIDAEMIA
     Dosage: 10/20 MG, QD
     Route: 048
     Dates: start: 20130111
  2. LOSARTAN POTASSIUM [Suspect]
     Dosage: UNK
     Route: 048
  3. METHYLDOPA [Suspect]
     Dosage: UNK, BID
     Route: 048
  4. SIMVASTATIN [Suspect]
     Dosage: UNK
     Route: 048
  5. GLYBURIDE [Concomitant]
     Dosage: UNK
     Route: 048

REACTIONS (5)
  - Headache [Unknown]
  - Oedema [Unknown]
  - Hypertensive crisis [Not Recovered/Not Resolved]
  - Fluid retention [Not Recovered/Not Resolved]
  - Hypersensitivity [Unknown]
